FAERS Safety Report 5193921-6 (Version None)
Quarter: 2006Q4

REPORT INFORMATION
  Report Type: 
  Country: None (occurrence: None)
  Receive Date: 20061222
  Receipt Date: 20061220
  Transmission Date: 20070319
  Serious: Yes (Hospitalization)
  Sender: FDA-Public Use
  Company Number: 2006000689

PATIENT
  Age: 37 Year
  Sex: Male

DRUGS (12)
  1. ROXICODONE [Suspect]
     Dosage: 120 MG; DAILY; ORAL
     Route: 048
     Dates: start: 20060616
  2. FENTANYL TRANSDERMAL SYSTEM [Suspect]
     Indication: BREAKTHROUGH PAIN
     Dosage: 600 UG; AS NEEDED; BUCCAL
     Route: 002
     Dates: start: 20060518, end: 20060808
  3. ACETAMINOPHEN AND HYDROCODONE BITARTRATE [Suspect]
     Dates: start: 20060616
  4. NOVOLOG [Concomitant]
  5. LANTUS [Concomitant]
  6. ACEON [Concomitant]
  7. LEVITRA [Concomitant]
  8. NEURONTIN [Concomitant]
  9. PRAVACHOL [Concomitant]
  10. ATIVAN [Concomitant]
  11. PHENERGAN [Concomitant]
  12. STOOL SOFTENER [Concomitant]

REACTIONS (2)
  - DRUG WITHDRAWAL SYNDROME [None]
  - TREATMENT NONCOMPLIANCE [None]
